FAERS Safety Report 4940568-X (Version None)
Quarter: 2006Q1

REPORT INFORMATION
  Report Type: 
  Country: None (occurrence: None)
  Receive Date: 20060201
  Receipt Date: 20051027
  Transmission Date: 20060701
  Serious: No
  Sender: FDA-Public Use
  Company Number: 2005PV003632

PATIENT
  Age: 73 Year
  Sex: Male
  Weight: 95.709 kg

DRUGS (3)
  1. BYETTA [Suspect]
     Indication: DIABETES MELLITUS
     Dosage: 8 MCG;BID;SC
     Route: 058
     Dates: start: 20051027
  2. HUMULIN 70/30 [Concomitant]
  3. BLOOD PRESSURE PILL [Concomitant]

REACTIONS (2)
  - DYSGEUSIA [None]
  - PAROSMIA [None]
